FAERS Safety Report 4323086-1 (Version None)
Quarter: 2004Q1

REPORT INFORMATION
  Report Type: 
  Country: None (occurrence: None)
  Receive Date: 20040322
  Receipt Date: 20040308
  Transmission Date: 20041129
  Serious: Yes (Hospitalization, Other)
  Sender: FDA-Public Use
  Company Number: 2004016191

PATIENT
  Sex: Female
  Weight: 87.0906 kg

DRUGS (4)
  1. NEURONTIN [Suspect]
     Indication: PAIN
     Dosage: UNKNOWN (UNKNOWN); ORAL
     Route: 048
     Dates: end: 20040101
  2. DILTIAZEM HYDROCHLORIDE [Concomitant]
  3. BENAZEPRIL HCL [Concomitant]
  4. HYDROCHLOROTHIAZIDE [Concomitant]

REACTIONS (10)
  - CRYING [None]
  - DIABETES MELLITUS [None]
  - FATIGUE [None]
  - HEPATIC CIRRHOSIS [None]
  - HEPATIC STEATOSIS [None]
  - HEPATOMEGALY [None]
  - IMPAIRED WORK ABILITY [None]
  - INTESTINAL OBSTRUCTION [None]
  - LIVER DISORDER [None]
  - TREMOR [None]
